FAERS Safety Report 4474197-1 (Version None)
Quarter: 2004Q4

REPORT INFORMATION
  Report Type: 
  Country: None (occurrence: None)
  Receive Date: 20041008
  Receipt Date: 20040921
  Transmission Date: 20050328
  Serious: Yes (Hospitalization)
  Sender: FDA-Public Use
  Company Number: JP_040804277

PATIENT
  Age: 83 Year
  Sex: Male
  Weight: 54 kg

DRUGS (14)
  1. GEMZAR [Suspect]
     Indication: LUNG NEOPLASM MALIGNANT
     Dosage: 900 MG OTHER
     Route: 042
     Dates: start: 20040803, end: 20040803
  2. ESTRACYT (ESTRANYSTUNE PHOSPHATE SODIUM) [Concomitant]
  3. NEU-UP (NARTOGRASTIM) [Concomitant]
  4. NASEA (RAMOSETRON HYDROCHLORIDE) [Concomitant]
  5. DECADRON          #1 (DEXAMETHASONE SODIUM PHOSPHATE) [Concomitant]
  6. CHLORPHENIRAMINE MALEATE [Concomitant]
  7. DIART (AZOSEMIDE) [Concomitant]
  8. BUP-4 (PROPIVEINE HYDROCHLORIDE) [Concomitant]
  9. ULGUT (BENEXATE HYDROCHLORIDE) [Concomitant]
  10. ASPIRIN [Concomitant]
  11. MICARDIS [Concomitant]
  12. NORVASC [Concomitant]
  13. MUCODYNE (CARBOCISTEINE) [Concomitant]
  14. OMEPRAZOLE [Concomitant]

REACTIONS (5)
  - INTERSTITIAL LUNG DISEASE [None]
  - PLATELET COUNT DECREASED [None]
  - PLEURAL EFFUSION [None]
  - PYREXIA [None]
  - WHITE BLOOD CELL COUNT DECREASED [None]
